FAERS Safety Report 8297597-0 (Version None)
Quarter: 2012Q2

REPORT INFORMATION
  Report Type: 
  Country: None (occurrence: None)
  Receive Date: 20120419
  Receipt Date: 20120416
  Transmission Date: 20120825
  Serious: Yes (Hospitalization)
  Sender: FDA-Public Use
  Company Number: PHHY2012DE027986

PATIENT
  Sex: Female
  Weight: 75 kg

DRUGS (3)
  1. ESCITALOPRAM [Concomitant]
     Dosage: 10 MG, DAILY
  2. GLEEVEC [Suspect]
     Indication: CHRONIC MYELOID LEUKAEMIA
     Dosage: 400 MG, DAILY
     Route: 048
     Dates: start: 20080101
  3. PROMETHAZINE [Concomitant]
     Dosage: 10 MG, DAILY

REACTIONS (1)
  - PROCEDURAL HAEMORRHAGE [None]
